FAERS Safety Report 25440160 (Version 2)
Quarter: 2025Q3

REPORT INFORMATION
  Report Type: Spontaneous
  Country: US (occurrence: US)
  Receive Date: 20250616
  Receipt Date: 20250806
  Transmission Date: 20251021
  Serious: Yes (Other)
  Sender: PFIZER
  Company Number: US-PFIZER INC-202500119392

PATIENT
  Age: 16 Year
  Sex: Male

DRUGS (2)
  1. GENOTROPIN [Suspect]
     Active Substance: SOMATROPIN
     Dosage: 2.2 MG, ALTERNATE DAY (ALTERNATING 2.2MG AND 2.4MG DAILY)
     Dates: end: 20250317
  2. GENOTROPIN [Suspect]
     Active Substance: SOMATROPIN
     Dosage: 2.4 MG, ALTERNATE DAY (ALTERNATING 2.2MG AND 2.4MG DAILY)
     Dates: end: 20250317

REACTIONS (8)
  - Lymphoma [Unknown]
  - Drug hypersensitivity [Unknown]
  - Lymphadenopathy [Recovered/Resolved]
  - Anaemia [Not Recovered/Not Resolved]
  - Liver function test increased [Recovered/Resolved]
  - Tumour marker increased [Recovered/Resolved]
  - Weight decreased [Recovered/Resolved]
  - Night sweats [Recovered/Resolved]
